FAERS Safety Report 18179601 (Version 1)
Quarter: 2020Q3

REPORT INFORMATION
  Report Type: Spontaneous
  Country: CH (occurrence: CH)
  Receive Date: 20200821
  Receipt Date: 20200821
  Transmission Date: 20201103
  Serious: Yes (Disabling)
  Sender: FDA-Public Use
  Company Number: CH-ASTRAZENECA-2020SE84542

PATIENT
  Age: 777 Month
  Sex: Female
  Weight: 66 kg

DRUGS (10)
  1. FASENRA [Suspect]
     Active Substance: BENRALIZUMAB
     Indication: ASTHMA
     Dosage: 30.0MG UNKNOWN
     Route: 058
     Dates: start: 20200103
  2. MONTELUKAST MEPHA [Concomitant]
     Dosage: 10MG LACTABS 1 TABLETS IN THE EVENING
     Route: 065
  3. ASPIRIN. [Concomitant]
     Active Substance: ASPIRIN
     Dosage: 100MG TABLETS 1 TABLET IN THE MORNING
     Route: 065
  4. METFIN [Concomitant]
     Active Substance: METFORMIN HYDROCHLORIDE
     Dosage: 1000MG TABLETS 1 TABLET IN THE MORNING / 1 TABLET IN THE EVENING
     Route: 065
  5. SPIRIVA [Concomitant]
     Active Substance: TIOTROPIUM BROMIDE MONOHYDRATE
     Dosage: 18MCG INH CAPS. 2X/DAY
     Route: 065
  6. ALVESCO [Concomitant]
     Active Substance: CICLESONIDE
     Dosage: 160MCG 1X/DAY
     Route: 065
  7. CRESTOR [Concomitant]
     Active Substance: ROSUVASTATIN CALCIUM
     Dosage: 10MG TABLETS 1 TABLET IN THE EVENING
     Route: 065
  8. INHALED STEROIDS [Concomitant]
     Indication: ASTHMA
  9. KALCIPOS [Concomitant]
     Active Substance: CALCIUM CARBONATE
     Dosage: 500/800 TABLETS 1 TABLET IN THE MORNING
     Route: 065
  10. OXIS TH [Concomitant]
     Dosage: 6MCG 2 INHALATIONS/DAY
     Route: 065

REACTIONS (2)
  - Myalgia [Recovering/Resolving]
  - Peripheral swelling [Recovering/Resolving]

NARRATIVE: CASE EVENT DATE: 202006
